FAERS Safety Report 7637029-6 (Version None)
Quarter: 2011Q3

REPORT INFORMATION
  Report Type: 
  Country: None (occurrence: None)
  Receive Date: 20110726
  Receipt Date: 20110721
  Transmission Date: 20111222
  Serious: Yes (Hospitalization, Other)
  Sender: FDA-Public Use
  Company Number: EG-PFIZER INC-2011154808

PATIENT
  Age: 50 Year
  Sex: Male

DRUGS (7)
  1. CELEBREX [Suspect]
     Indication: INTERVERTEBRAL DISC PROTRUSION
     Dosage: 200 MG, UNK
     Route: 048
  2. TRILEPTAL [Suspect]
     Dosage: 300 MG, UNK
     Route: 048
  3. CELEBREX [Suspect]
     Indication: OSTEOARTHRITIS
  4. WELLBUTRIN [Concomitant]
     Indication: ANTIDEPRESSANT THERAPY
     Dosage: UNK
     Route: 048
  5. DEPAKENE [Concomitant]
     Indication: INAPPROPRIATE AFFECT
     Dosage: 500 MG, 2X/DAY
     Route: 048
  6. LYRICA [Suspect]
     Indication: INTERVERTEBRAL DISC PROTRUSION
     Dosage: 75 MG, UNK
     Route: 048
  7. LYRICA [Suspect]
     Indication: OSTEOARTHRITIS

REACTIONS (6)
  - GAIT DISTURBANCE [None]
  - ABDOMINAL PAIN [None]
  - SUICIDE ATTEMPT [None]
  - DIZZINESS [None]
  - VERTIGO [None]
  - HYPERSOMNIA [None]
